FAERS Safety Report 21477948 (Version 1)
Quarter: 2022Q4

REPORT INFORMATION
  Report Type: Spontaneous
  Country: US (occurrence: None)
  Receive Date: 20221018
  Receipt Date: 20221018
  Transmission Date: 20230113
  Serious: Yes (Hospitalization)
  Sender: FDA-Public Use
  Company Number: None

PATIENT
  Sex: Male
  Weight: 79.83 kg

DRUGS (5)
  1. SPRYCEL [Suspect]
     Active Substance: DASATINIB
     Indication: Acute lymphocytic leukaemia
     Dosage: FREQUENCY : DAILY;?
     Route: 048
     Dates: start: 202204
  2. DEXAMETHASONE [Concomitant]
     Active Substance: DEXAMETHASONE
  3. PROMETHAZINE [Concomitant]
     Active Substance: PROMETHAZINE HYDROCHLORIDE
  4. SODIUM CHLORIDE [Concomitant]
     Active Substance: SODIUM CHLORIDE
  5. VINCRISTINE [Concomitant]
     Active Substance: VINCRISTINE

REACTIONS (1)
  - Red blood cell count decreased [None]
